FAERS Safety Report 10227904 (Version 3)
Quarter: 2014Q3

REPORT INFORMATION
  Report Type: Spontaneous
  Country: IT (occurrence: IT)
  Receive Date: 20140610
  Receipt Date: 20140718
  Transmission Date: 20150326
  Serious: Yes (Other)
  Sender: FDA-Public Use
  Company Number: IT-009507513-1406ITA003418

PATIENT
  Age: 30 Year
  Sex: Female

DRUGS (1)
  1. NUVARING [Suspect]
     Active Substance: ETHINYL ESTRADIOL\ETONOGESTREL
     Indication: CONTRACEPTION
     Dosage: UNK, CYCLICAL
     Route: 067
     Dates: start: 201304, end: 201404

REACTIONS (4)
  - Abortion induced [Unknown]
  - Unintended pregnancy [Recovered/Resolved]
  - Pregnancy on contraceptive [Recovered/Resolved]
  - Incorrect product storage [Unknown]

NARRATIVE: CASE EVENT DATE: 20140424
